FAERS Safety Report 10628885 (Version 2)
Quarter: 2014Q4

REPORT INFORMATION
  Report Type: Spontaneous
  Country: US (occurrence: US)
  Receive Date: 20141205
  Receipt Date: 20141205
  Transmission Date: 20150529
  Serious: Yes (Hospitalization)
  Sender: FDA-Public Use
  Company Number: US-BRISTOL-MYERS SQUIBB COMPANY-21206487

PATIENT
  Age: 67 Year
  Sex: Female

DRUGS (12)
  1. SERTRALINE [Concomitant]
     Active Substance: SERTRALINE HYDROCHLORIDE
  2. ADVIL [Concomitant]
     Active Substance: IBUPROFEN
  3. LIDOCAINE. [Suspect]
     Active Substance: LIDOCAINE
     Dosage: 1DF=NOT}2 CC MIX 3CC 0.5 % BUPIVACAINE+3CC 2% LIDOCAINE+2CC TRIAMCINOLONE
  4. KENALOG-40 [Suspect]
     Active Substance: TRIAMCINOLONE ACETONIDE
     Indication: BACK PAIN
     Dosage: LOT NOL:3C82282 EX DT:FEB2015?1DF=NOT}2CCMIX 3CC 0.5%BUPIVACAINE+3CC 2%LIDOCAINE+2CCTRIAMCINOLONE
     Route: 014
     Dates: start: 20140702
  5. KENALOG-40 [Suspect]
     Active Substance: TRIAMCINOLONE ACETONIDE
     Indication: SPINAL OSTEOARTHRITIS
     Dosage: LOT NOL:3C82282 EX DT:FEB2015?1DF=NOT}2CCMIX 3CC 0.5%BUPIVACAINE+3CC 2%LIDOCAINE+2CCTRIAMCINOLONE
     Route: 014
     Dates: start: 20140702
  6. VERSED [Suspect]
     Active Substance: MIDAZOLAM HYDROCHLORIDE
     Indication: SEDATION
  7. OMNIPAQUE [Suspect]
     Active Substance: IOHEXOL
  8. LISINOPRIL. [Concomitant]
     Active Substance: LISINOPRIL
  9. SIMVASTATIN. [Concomitant]
     Active Substance: SIMVASTATIN
  10. MARCAINE [Suspect]
     Active Substance: BUPIVACAINE HYDROCHLORIDE
     Dosage: 1DF=NOT}2 CC MIX 3CC 0.5 % BUPIVACAINE+3CC 2% LIDOCAINE+2CC TRIAMCINOLONE
  11. LISINOPRIL. [Concomitant]
     Active Substance: LISINOPRIL
  12. HYDROCHLOROTHIAZIDE. [Concomitant]
     Active Substance: HYDROCHLOROTHIAZIDE

REACTIONS (1)
  - Anaphylactic reaction [Recovering/Resolving]

NARRATIVE: CASE EVENT DATE: 20140702
